FAERS Safety Report 13367188 (Version 1)
Quarter: 2017Q1

REPORT INFORMATION
  Report Type: Spontaneous
  Country: US (occurrence: US)
  Receive Date: 20170323
  Receipt Date: 20170323
  Transmission Date: 20170429
  Serious: Yes (Life-Threatening, Hospitalization, Other)
  Sender: FDA-Public Use
  Company Number: None

PATIENT
  Age: 67 Year
  Sex: Male
  Weight: 79.6 kg

DRUGS (15)
  1. CARBOPLATIN. [Concomitant]
     Active Substance: CARBOPLATIN
  2. PEMBROLIZUMAB. [Suspect]
     Active Substance: PEMBROLIZUMAB
     Indication: MESOTHELIOMA
     Dosage: OTHER FREQUENCY:EVERY 3 WEEKS;?
     Route: 041
     Dates: start: 20160921, end: 20161109
  3. LASIX [Concomitant]
     Active Substance: FUROSEMIDE
  4. PREDNISONE. [Concomitant]
     Active Substance: PREDNISONE
  5. ELIQUIS [Concomitant]
     Active Substance: APIXABAN
  6. ASPIRIN. [Concomitant]
     Active Substance: ASPIRIN
  7. LIPITOR [Concomitant]
     Active Substance: ATORVASTATIN CALCIUM
  8. HYDROCODONE-ACETAMINOPHEN (NORCO) [Concomitant]
  9. ZOFRAN [Concomitant]
     Active Substance: ONDANSETRON HYDROCHLORIDE
  10. CARVEDILOL (COREG) [Concomitant]
  11. TAB-A-VITE MULTIVITAMIN (MULTI-DAY) [Concomitant]
  12. PEMETREXED [Suspect]
     Active Substance: PEMETREXED
     Indication: MESOTHELIOMA
     Dosage: OTHER FREQUENCY:Q 3 WEEKS;?
     Route: 041
     Dates: start: 20170208, end: 20170301
  13. DOCUSATE (COLACE) [Concomitant]
  14. PROCHLORPERAZINE (COMPAZINE) [Concomitant]
  15. VANCOMYCIN [Concomitant]
     Active Substance: VANCOMYCIN

REACTIONS (7)
  - Myocarditis [None]
  - Thrombocytopenia [None]
  - Cerebrovascular accident [None]
  - Dyspnoea [None]
  - Fluid overload [None]
  - Neutropenia [None]
  - Splenic artery thrombosis [None]

NARRATIVE: CASE EVENT DATE: 20170210
